FAERS Safety Report 6569296-4 (Version None)
Quarter: 2010Q1

REPORT INFORMATION
  Report Type: 
  Country: None (occurrence: None)
  Receive Date: 20100201
  Receipt Date: 20100201
  Transmission Date: 20100710
  Serious: No
  Sender: FDA-Public Use
  Company Number: None

PATIENT
  Age: 66 Year
  Sex: Female

DRUGS (1)
  1. FENTANYL [Suspect]
     Indication: LUMBAR SPINAL STENOSIS
     Dosage: 75 MCG 1X3 DAY TRANSDERMAL
     Route: 062
     Dates: start: 20080605, end: 20080607

REACTIONS (1)
  - RASH [None]
